FAERS Safety Report 6036416-X (Version None)
Quarter: 2009Q1

REPORT INFORMATION
  Report Type: 
  Country: None (occurrence: None)
  Receive Date: 20090112
  Receipt Date: 20081223
  Transmission Date: 20090719
  Serious: Yes (Other)
  Sender: FDA-Public Use
  Company Number: 8040627

PATIENT
  Sex: Male

DRUGS (2)
  1. KEPPRA [Suspect]
     Dosage: 500 MG 2/D TRP
     Route: 064
     Dates: end: 20081006
  2. FOLIC ACID [Concomitant]

REACTIONS (6)
  - GINGIVAL BLEEDING [None]
  - INCREASED TENDENCY TO BRUISE [None]
  - MATERNAL DRUGS AFFECTING FOETUS [None]
  - RIB FRACTURE [None]
  - SWELLING [None]
  - UPPER LIMB FRACTURE [None]
